FAERS Safety Report 24404845 (Version 1)
Quarter: 2024Q4

REPORT INFORMATION
  Report Type: Spontaneous
  Country: US (occurrence: None)
  Receive Date: 20241004
  Receipt Date: 20241004
  Transmission Date: 20250115
  Serious: Yes (Hospitalization)
  Sender: Public
  Company Number: None

PATIENT
  Age: 71 Year
  Sex: Male

DRUGS (2)
  1. SACUBITRIL\VALSARTAN [Suspect]
     Active Substance: SACUBITRIL\VALSARTAN
     Indication: Hypotension
     Dosage: FREQUENCY : TWICE A DAY;?
     Route: 048
     Dates: end: 20240416
  2. EMPAGLIFLOZIN [Suspect]
     Active Substance: EMPAGLIFLOZIN
     Dosage: FREQUENCY : DAILY;?
     Route: 048
     Dates: end: 20240416

REACTIONS (6)
  - Hypotension [None]
  - Syncope [None]
  - Depression [None]
  - Suicidal ideation [None]
  - Hypovolaemia [None]
  - Ejection fraction decreased [None]

NARRATIVE: CASE EVENT DATE: 20240415
